FAERS Safety Report 20724002 (Version 1)
Quarter: 2022Q2

REPORT INFORMATION
  Report Type: Report from Study
  Country: CA (occurrence: CA)
  Receive Date: 20220419
  Receipt Date: 20220419
  Transmission Date: 20220721
  Serious: Yes (Hospitalization, Other)
  Sender: FDA-Public Use
  Company Number: None

PATIENT
  Age: 36 Year
  Sex: Female

DRUGS (8)
  1. IRINOTECAN [Suspect]
     Active Substance: IRINOTECAN
     Indication: Product used for unknown indication
  2. XELODA [Suspect]
     Active Substance: CAPECITABINE
     Indication: Metastatic neoplasm
     Route: 048
  3. BEVACIZUMAB [Suspect]
     Active Substance: BEVACIZUMAB
     Indication: Colorectal cancer metastatic
     Route: 065
  4. CARBOPLATIN [Concomitant]
     Active Substance: CARBOPLATIN
  5. CELECOXIB [Concomitant]
     Active Substance: CELECOXIB
  6. DOXYCYCLINE [Concomitant]
     Active Substance: DOXYCYCLINE
  7. MEBENDAZOLE [Concomitant]
     Active Substance: MEBENDAZOLE
  8. METFORMIN [Concomitant]
     Active Substance: METFORMIN HYDROCHLORIDE
     Route: 065

REACTIONS (7)
  - Hepatic cancer [Unknown]
  - Abdominal rigidity [Unknown]
  - Incision site impaired healing [Unknown]
  - Liver disorder [Unknown]
  - Lung neoplasm malignant [Unknown]
  - Neoplasm [Unknown]
  - Post procedural bile leak [Unknown]
